FAERS Safety Report 16244078 (Version 3)
Quarter: 2019Q2

REPORT INFORMATION
  Report Type: Spontaneous
  Country: JP (occurrence: JP)
  Receive Date: 20190426
  Receipt Date: 20190509
  Transmission Date: 20190711
  Serious: Yes (Other)
  Sender: FDA-Public Use
  Company Number: JP-PFIZER INC-2019173419

PATIENT
  Age: 81 Year
  Sex: Female

DRUGS (11)
  1. L CARTIN FF [Interacting]
     Active Substance: LEVOCARNITINE
     Indication: CARNITINE DEFICIENCY
     Dosage: 1000 MG, QD
     Route: 042
  2. NESP [Suspect]
     Active Substance: DARBEPOETIN ALFA
     Dosage: 60 UG, QD
     Route: 065
  3. FERROMIA [Suspect]
     Active Substance: SODIUM FERROUS CITRATE
     Dosage: 50 MG, QD
     Route: 065
  4. OXAROL [Suspect]
     Active Substance: MAXACALCITOL
     Dosage: 2.5 UG, QD
     Route: 042
  5. ANCARON [Suspect]
     Active Substance: AMIODARONE HYDROCHLORIDE
     Dosage: 100 MG, QD
     Route: 065
  6. BAYASPIRIN [Suspect]
     Active Substance: ASPIRIN
     Dosage: 100 MG, QD
     Route: 065
  7. BERAPROST SODIUM [Suspect]
     Active Substance: BERAPROST SODIUM
     Dosage: 20 UG, QD
     Route: 065
  8. AMITIZA [Suspect]
     Active Substance: LUBIPROSTONE
     Dosage: 2 DF, QD
     Route: 048
  9. NICORANDIL [Suspect]
     Active Substance: NICORANDIL
     Dosage: 5 MG, QD
     Route: 065
  10. LANSOPRAZOLE. [Interacting]
     Active Substance: LANSOPRAZOLE
     Dosage: 15 MG, QD
     Route: 065
  11. FUTHAN [Interacting]
     Active Substance: NAFAMOSTAT MESYLATE
     Dosage: 120 MG, QD
     Route: 065

REACTIONS (2)
  - Drug interaction [Unknown]
  - Burning sensation [Unknown]

NARRATIVE: CASE EVENT DATE: 20190327
